FAERS Safety Report 15888343 (Version 1)
Quarter: 2019Q1

REPORT INFORMATION
  Report Type: Spontaneous
  Country: CZ (occurrence: CZ)
  Receive Date: 20190130
  Receipt Date: 20190130
  Transmission Date: 20190417
  Serious: Yes (Hospitalization, Other)
  Sender: FDA-Public Use
  Company Number: CZ-ACCORD-103904

PATIENT
  Age: 45 Year

DRUGS (3)
  1. CARBOPLATIN. [Suspect]
     Active Substance: CARBOPLATIN
     Indication: OVARIAN CANCER
     Dosage: TOTAL OF THREE SERIES OF ADJUVANT CHEMOTHERAPY WERE ADMINISTERED
  2. GEMCITABINE/GEMCITABINE HYDROCHLORIDE [Suspect]
     Active Substance: GEMCITABINE\GEMCITABINE HYDROCHLORIDE
     Indication: OVARIAN CANCER
  3. PACLITAXEL/PACLITAXEL LIPOSOME [Suspect]
     Active Substance: PACLITAXEL
     Indication: OVARIAN CANCER
     Dosage: TOTAL OF THREE SERIES OF ADJUVANT CHEMOTHERAPY WERE ADMINISTERED

REACTIONS (10)
  - Neutropenia [Unknown]
  - Abdominal pain [Unknown]
  - Metastases to bladder [None]
  - Dyspepsia [Unknown]
  - Metastases to stomach [None]
  - Disease progression [None]
  - Metastases to neck [None]
  - Metastases to lymph nodes [None]
  - Vomiting [Unknown]
  - Metastases to liver [None]
